FAERS Safety Report 8309408-5 (Version None)
Quarter: 2012Q2

REPORT INFORMATION
  Report Type: 
  Country: None (occurrence: None)
  Receive Date: 20120420
  Receipt Date: 20120407
  Transmission Date: 20120825
  Serious: Yes (Hospitalization, Disabling, Other)
  Sender: FDA-Public Use
  Company Number: 2012AP000988

PATIENT
  Age: 71 Year
  Sex: Female

DRUGS (5)
  1. ALENDRONATE SODIUM [Suspect]
     Indication: OSTEOPOROSIS
     Dates: start: 20000101, end: 20061101
  2. ALENDRONATE SODIUM [Suspect]
     Indication: OSTEOPOROSIS
     Dates: start: 20080501, end: 20080801
  3. ALENDRONATE SODIUM [Suspect]
     Indication: OSTEOPOROSIS
     Dates: start: 20081001, end: 20090901
  4. ALENDRONATE SODIUM [Suspect]
     Indication: OSTEOPOROSIS
     Dates: start: 20091001, end: 20100501
  5. IBANDRONATE SODIUM [Suspect]
     Indication: OSTEOPOROSIS
     Dates: start: 20070201, end: 20080501

REACTIONS (9)
  - ANXIETY [None]
  - LOW TURNOVER OSTEOPATHY [None]
  - FEMUR FRACTURE [None]
  - STRESS FRACTURE [None]
  - OSTEOGENESIS IMPERFECTA [None]
  - FEAR [None]
  - QUALITY OF LIFE DECREASED [None]
  - EMOTIONAL DISTRESS [None]
  - PSYCHOGENIC PAIN DISORDER [None]
